FAERS Safety Report 14531423 (Version 4)
Quarter: 2018Q3

REPORT INFORMATION
  Report Type: Spontaneous
  Country: IE (occurrence: IE)
  Receive Date: 20180214
  Receipt Date: 20180706
  Transmission Date: 20181010
  Serious: Yes (Hospitalization, Other)
  Sender: FDA-Public Use
  Company Number: US-PFIZER INC-2018062177

PATIENT
  Sex: Female

DRUGS (1)
  1. TETRACYCLINE HCL [Suspect]
     Active Substance: TETRACYCLINE HYDROCHLORIDE
     Dosage: UNK

REACTIONS (14)
  - Emotional distress [Unknown]
  - Discomfort [Unknown]
  - Bone disorder [Unknown]
  - Drug administered to patient of inappropriate age [Unknown]
  - Tooth loss [Unknown]
  - Jaw disorder [Not Recovered/Not Resolved]
  - Epilepsy [Unknown]
  - Speech disorder [Unknown]
  - Liver disorder [Unknown]
  - Dental caries [Recovered/Resolved]
  - Pain [Not Recovered/Not Resolved]
  - Arthritis [Unknown]
  - Fibromyalgia [Unknown]
  - Tooth discolouration [Not Recovered/Not Resolved]

NARRATIVE: CASE EVENT DATE: 1963
